FAERS Safety Report 15103556 (Version 1)
Quarter: 2018Q3

REPORT INFORMATION
  Report Type: Spontaneous
  Country: GB (occurrence: GB)
  Receive Date: 20180703
  Receipt Date: 20180703
  Transmission Date: 20181010
  Serious: Yes (Hospitalization)
  Sender: FDA-Public Use
  Company Number: GB-JNJFOC-20180639766

PATIENT
  Age: 88 Year
  Sex: Male
  Weight: 88 kg

DRUGS (7)
  1. LATANOPROST. [Concomitant]
     Active Substance: LATANOPROST
     Route: 065
  2. FINASTERIDE. [Concomitant]
     Active Substance: FINASTERIDE
     Route: 065
  3. LEVOTHYROXINE SODIUM. [Concomitant]
     Active Substance: LEVOTHYROXINE SODIUM
     Route: 065
  4. INSULIN GLARGINE [Concomitant]
     Active Substance: INSULIN GLARGINE
     Route: 065
  5. XARELTO [Suspect]
     Active Substance: RIVAROXABAN
     Indication: ATRIAL FIBRILLATION
     Route: 048
     Dates: start: 20170601
  6. DORZOLAMIDE HYDROCHLORIDE AND TIMOLOL MALEATE [Concomitant]
     Active Substance: DORZOLAMIDE HYDROCHLORIDE\TIMOLOL MALEATE
     Route: 065
  7. LINAGLIPTIN [Concomitant]
     Active Substance: LINAGLIPTIN
     Route: 065

REACTIONS (2)
  - Deep vein thrombosis [Recovered/Resolved]
  - Treatment failure [Recovered/Resolved]

NARRATIVE: CASE EVENT DATE: 20180215
